FAERS Safety Report 5018670-6 (Version None)
Quarter: 2006Q2

REPORT INFORMATION
  Report Type: 
  Country: None (occurrence: None)
  Receive Date: 20060530
  Receipt Date: 20060515
  Transmission Date: 20061013
  Serious: Yes (Hospitalization)
  Sender: FDA-Public Use
  Company Number: 2006PV013742

PATIENT
  Age: 67 Year
  Sex: Female
  Weight: 61.6892 kg

DRUGS (9)
  1. BYETTA [Suspect]
     Indication: DIABETES MELLITUS NON-INSULIN-DEPENDENT
     Dosage: 5 MCG; BID; SC
     Route: 058
     Dates: start: 20050520, end: 20060426
  2. METFORMIN [Concomitant]
  3. DILTIAZEM [Concomitant]
  4. AGGRENOX [Concomitant]
  5. FOLBIC (VITAMIN) [Concomitant]
  6. DILANTIN [Concomitant]
  7. SYNTHROID [Concomitant]
  8. ALTACE [Concomitant]
  9. VYTORIN [Concomitant]

REACTIONS (12)
  - ABDOMINAL DISTENSION [None]
  - CONSTIPATION [None]
  - DEHYDRATION [None]
  - DYSPEPSIA [None]
  - EARLY SATIETY [None]
  - FATIGUE [None]
  - FLATULENCE [None]
  - NAUSEA [None]
  - ORAL INTAKE REDUCED [None]
  - THERAPEUTIC RESPONSE UNEXPECTED [None]
  - VOMITING [None]
  - WEIGHT DECREASED [None]
